FAERS Safety Report 15345020 (Version 2)
Quarter: 2018Q3

REPORT INFORMATION
  Report Type: Spontaneous
  Country: DE (occurrence: DE)
  Receive Date: 20180903
  Receipt Date: 20180917
  Transmission Date: 20181010
  Serious: Yes (Hospitalization, Other)
  Sender: FDA-Public Use
  Company Number: DE-009507513-1808DEU011661

PATIENT
  Age: 79 Year
  Sex: Male

DRUGS (4)
  1. MESALAMINE. [Concomitant]
     Active Substance: MESALAMINE
     Dosage: 1 G, TID (3X1)
  2. PEMBROLIZUMAB. [Suspect]
     Active Substance: PEMBROLIZUMAB
     Indication: METASTATIC MALIGNANT MELANOMA
     Dosage: 196 MG/KG, Q3W
     Dates: start: 20160613, end: 20160725
  3. PEMBROLIZUMAB. [Suspect]
     Active Substance: PEMBROLIZUMAB
     Dosage: 196 MG/KG, Q3W
     Dates: start: 2016, end: 20160830
  4. CLOPIDOGREL [Concomitant]
     Active Substance: CLOPIDOGREL BISULFATE
     Dosage: 75 MG, QD

REACTIONS (3)
  - Pneumonitis chemical [Recovering/Resolving]
  - Autoimmune colitis [Unknown]
  - Immune-mediated adverse reaction [Recovering/Resolving]

NARRATIVE: CASE EVENT DATE: 2016
